FAERS Safety Report 9474076 (Version 9)
Quarter: 2016Q1

REPORT INFORMATION
  Report Type: Spontaneous
  Country: US (occurrence: US)
  Receive Date: 20130823
  Receipt Date: 20160322
  Transmission Date: 20160526
  Serious: Yes (Hospitalization, Disabling, Other)
  Sender: FDA-Public Use
  Company Number: US-009507513-1308USA007191

PATIENT
  Sex: Female
  Weight: 66 kg

DRUGS (1)
  1. NEXPLANON [Suspect]
     Active Substance: ETONOGESTREL
     Indication: CONTRACEPTION
     Dosage: UNK
     Route: 059
     Dates: start: 20130426

REACTIONS (3)
  - Complication associated with device [Not Recovered/Not Resolved]
  - Limb traumatic amputation [Unknown]
  - Road traffic accident [Unknown]

NARRATIVE: CASE EVENT DATE: 2013
